FAERS Safety Report 7161132-0 (Version None)
Quarter: 2010Q4

REPORT INFORMATION
  Report Type: 
  Country: None (occurrence: None)
  Receive Date: 20101215
  Receipt Date: 20101206
  Transmission Date: 20110411
  Serious: No
  Sender: FDA-Public Use
  Company Number: US-BIOGENIDEC-2010BI029945

PATIENT
  Age: 47 Year
  Sex: Female

DRUGS (1)
  1. TYSABRI [Suspect]
     Indication: MULTIPLE SCLEROSIS
     Route: 042
     Dates: start: 20091106

REACTIONS (8)
  - DRUG ERUPTION [None]
  - GINGIVAL INFECTION [None]
  - MUSCLE SPASMS [None]
  - ORAL INFECTION [None]
  - PARAESTHESIA [None]
  - SINUS DISORDER [None]
  - TOOTH EXTRACTION [None]
  - TOOTH INFECTION [None]
